FAERS Safety Report 14018430 (Version 1)
Quarter: 2017Q3

REPORT INFORMATION
  Report Type: Spontaneous
  Country: US (occurrence: US)
  Receive Date: 20170928
  Receipt Date: 20170928
  Transmission Date: 20171128
  Serious: Yes (Other)
  Sender: FDA-Public Use
  Company Number: US-TEVA-696721USA

PATIENT
  Sex: Female
  Weight: 118.04 kg

DRUGS (3)
  1. GABAPENTIN. [Suspect]
     Active Substance: GABAPENTIN
     Indication: FIBROMYALGIA
     Dosage: 1800 MILLIGRAM DAILY; 3 CAPSULE 3 TIMES PER DAY
     Route: 048
     Dates: start: 201605
  2. GABAPENTIN. [Suspect]
     Active Substance: GABAPENTIN
     Dosage: 2700 MILLIGRAM DAILY; 3 CAPSULES, 3 TIMES PER DAY
     Route: 048
  3. GABAPENTIN. [Suspect]
     Active Substance: GABAPENTIN
     Dosage: TAPERED OFF, ONE CAPSULE LESS DAILY, TILL GOT DOWN TO 0 MG
     Route: 048

REACTIONS (4)
  - Blood glucose increased [Recovered/Resolved]
  - Musculoskeletal pain [Unknown]
  - Drug effect incomplete [Unknown]
  - Drug ineffective [Unknown]

NARRATIVE: CASE EVENT DATE: 2016
